FAERS Safety Report 7704301-0 (Version None)
Quarter: 2011Q3

REPORT INFORMATION
  Report Type: 
  Country: None (occurrence: None)
  Receive Date: 20110823
  Receipt Date: 20110815
  Transmission Date: 20111222
  Serious: Yes (Other)
  Sender: FDA-Public Use
  Company Number: PHHY2010DE31225

PATIENT
  Sex: Female
  Weight: 48 kg

DRUGS (3)
  1. EXTAVIA [Suspect]
     Indication: MULTIPLE SCLEROSIS
     Dosage: 250 UG, QOD
     Route: 058
     Dates: start: 20100510
  2. EXTAVIA [Suspect]
     Dosage: 250 UG, QOD
     Route: 058
     Dates: start: 20110801
  3. CORTISONE ACETATE [Concomitant]
     Dosage: UNK UKN, UNK

REACTIONS (10)
  - AKINESIA [None]
  - JOINT STIFFNESS [None]
  - HEADACHE [None]
  - GRANULOMA [None]
  - ASTHENIA [None]
  - CHILLS [None]
  - PYREXIA [None]
  - INJECTION SITE SWELLING [None]
  - FEELING ABNORMAL [None]
  - LISTLESS [None]
